FAERS Safety Report 5279823-5 (Version None)
Quarter: 2007Q1

REPORT INFORMATION
  Report Type: 
  Country: None (occurrence: None)
  Receive Date: 20061212
  Receipt Date: 20051220
  Transmission Date: 20070707
  Serious: No
  Sender: FDA-Public Use
  Company Number: 2005UW19152

PATIENT
  Age: 50 Year
  Sex: Male
  Weight: 113.39 kg

DRUGS (5)
  1. RHINOCORT AQUA [Suspect]
     Indication: HYPERSENSITIVITY
     Dosage: 2 SPRAY BID IN
     Route: 055
     Dates: start: 20020101
  2. ADVAIR DISKUS 100/50 [Concomitant]
  3. INDERAL [Concomitant]
  4. XANAX [Concomitant]
  5. ASPIRIN [Concomitant]

REACTIONS (1)
  - EPISTAXIS [None]
